FAERS Safety Report 8780363 (Version 1)
Quarter: 2012Q4

REPORT INFORMATION
  Report Type: Spontaneous
  Country: US (occurrence: None)
  Receive Date: 20120905
  Receipt Date: 20120905
  Transmission Date: 20130627
  Serious: Yes (Other)
  Sender: FDA-Public Use
  Company Number: None

PATIENT
  Age: 70 Year
  Sex: Female
  Weight: 62.6 kg

DRUGS (1)
  1. RECLAST [Suspect]
     Dosage: 5mg/100mL Solution administered by IV over 1 hour
     Route: 042
     Dates: start: 20120319

REACTIONS (16)
  - Influenza like illness [None]
  - Myalgia [None]
  - Dizziness [None]
  - Nausea [None]
  - Migraine [None]
  - Neck pain [None]
  - Fatigue [None]
  - Muscle spasms [None]
  - Abdominal discomfort [None]
  - Vomiting [None]
  - Depression [None]
  - Stress [None]
  - Insomnia [None]
  - Arthralgia [None]
  - Pain in extremity [None]
  - Pain in extremity [None]
